FAERS Safety Report 24460919 (Version 1)
Quarter: 2024Q4

REPORT INFORMATION
  Report Type: Spontaneous
  Country: KR (occurrence: KR)
  Receive Date: 20241018
  Receipt Date: 20241018
  Transmission Date: 20250115
  Serious: No
  Sender: ROCHE
  Company Number: KR-ROCHE-3553942

PATIENT
  Age: 58 Year
  Sex: Female

DRUGS (3)
  1. MABTHERA [Suspect]
     Active Substance: RITUXIMAB
     Indication: Retinal disorder
     Route: 041
     Dates: start: 20220819
  2. METHOTREXATE [Suspect]
     Active Substance: METHOTREXATE
     Indication: Retinal disorder
     Route: 065
     Dates: start: 20220819
  3. VINCRISTINE SULFATE [Suspect]
     Active Substance: VINCRISTINE SULFATE
     Indication: Retinal disorder
     Route: 065
     Dates: start: 20220819

REACTIONS (1)
  - Neutropenia [Recovered/Resolved]

NARRATIVE: CASE EVENT DATE: 20220830
